FAERS Safety Report 4760609-2 (Version None)
Quarter: 2005Q3

REPORT INFORMATION
  Report Type: 
  Country: None (occurrence: None)
  Receive Date: 20050902
  Receipt Date: 20050826
  Transmission Date: 20060218
  Serious: Yes (Hospitalization)
  Sender: FDA-Public Use
  Company Number: US-BRISTOL-MYERS SQUIBB COMPANY-13092374

PATIENT
  Age: 52 Year
  Sex: Female
  Weight: 72 kg

DRUGS (7)
  1. GATIFLOXACIN [Suspect]
     Indication: PROPHYLAXIS
     Route: 042
  2. MIDAZOLAM [Suspect]
  3. FENTANYL [Suspect]
  4. ETOMIDATE [Suspect]
  5. PANCURONIUM BROMIDE [Suspect]
  6. DEXAMETHASONE [Suspect]
  7. DOLASETRON [Suspect]

REACTIONS (2)
  - HYPOGLYCAEMIA [None]
  - POST PROCEDURAL COMPLICATION [None]
